FAERS Safety Report 9759668 (Version 3)
Quarter: 2015Q3

REPORT INFORMATION
  Report Type: Spontaneous
  Country: US (occurrence: US)
  Receive Date: 20131216
  Receipt Date: 20150806
  Transmission Date: 20151125
  Serious: No
  Sender: FDA-Public Use
  Company Number: US-GILEAD-2010-0028582

PATIENT
  Age: 66 Year
  Sex: Female
  Weight: 58.51 kg

DRUGS (33)
  1. TIKOSYN [Concomitant]
     Active Substance: DOFETILIDE
  2. NIFEREX [Concomitant]
     Active Substance: IRON\POLYSACCHARIDES
  3. ADVAIR HFA [Concomitant]
     Active Substance: FLUTICASONE PROPIONATE\SALMETEROL XINAFOATE
  4. ASPIRIN. [Concomitant]
     Active Substance: ASPIRIN
  5. ZOFRAN [Concomitant]
     Active Substance: ONDANSETRON HYDROCHLORIDE
  6. LASIX [Concomitant]
     Active Substance: FUROSEMIDE
  7. SENNA [Concomitant]
     Active Substance: SENNA LEAF\SENNOSIDES\SENNOSIDES A AND B
  8. MIRTAZAPINE. [Concomitant]
     Active Substance: MIRTAZAPINE
  9. PREVACID [Concomitant]
     Active Substance: LANSOPRAZOLE
  10. METOPROLOL [Concomitant]
     Active Substance: METOPROLOL
  11. REGLAN [Concomitant]
     Active Substance: METOCLOPRAMIDE HYDROCHLORIDE
  12. MIRALAX [Concomitant]
     Active Substance: POLYETHYLENE GLYCOL 3350
  13. XOPENEX [Concomitant]
     Active Substance: LEVALBUTEROL HYDROCHLORIDE
  14. HUMULIN NOS [Concomitant]
     Active Substance: INSULIN HUMAN
  15. VENTAVIS [Concomitant]
     Active Substance: ILOPROST
  16. ADVIL [Concomitant]
     Active Substance: IBUPROFEN
  17. MULTIVITAMIN [Concomitant]
     Active Substance: VITAMINS
  18. LETAIRIS [Suspect]
     Active Substance: AMBRISENTAN
     Indication: PULMONARY ARTERIAL HYPERTENSION
     Route: 048
     Dates: start: 20100309
  19. DIGOXIN. [Concomitant]
     Active Substance: DIGOXIN
  20. MEGACE [Concomitant]
     Active Substance: MEGESTROL ACETATE
  21. ZOLOFT [Concomitant]
     Active Substance: SERTRALINE HYDROCHLORIDE
  22. POTASSIUM [Concomitant]
     Active Substance: POTASSIUM
  23. COREG [Concomitant]
     Active Substance: CARVEDILOL
  24. BISACODYL. [Concomitant]
     Active Substance: BISACODYL
  25. OXYGEN. [Concomitant]
     Active Substance: OXYGEN
  26. ATROVENT [Concomitant]
     Active Substance: IPRATROPIUM BROMIDE
  27. ZOCOR [Concomitant]
     Active Substance: SIMVASTATIN
  28. ALBUTEROL. [Concomitant]
     Active Substance: ALBUTEROL
  29. LUNESTA [Concomitant]
     Active Substance: ESZOPICLONE
  30. COUMADIN [Concomitant]
     Active Substance: WARFARIN SODIUM
  31. REVATIO [Concomitant]
     Active Substance: SILDENAFIL CITRATE
  32. SYNTHROID [Concomitant]
     Active Substance: LEVOTHYROXINE SODIUM
  33. VITAMIN D [Concomitant]
     Active Substance: CHOLECALCIFEROL

REACTIONS (2)
  - Haemoglobin decreased [Unknown]
  - Malaise [Unknown]

NARRATIVE: CASE EVENT DATE: 20100415
